FAERS Safety Report 10376606 (Version 4)
Quarter: 2017Q3

REPORT INFORMATION
  Report Type: Report from Study
  Country: CA (occurrence: CA)
  Receive Date: 20140811
  Receipt Date: 20170713
  Transmission Date: 20171127
  Serious: Yes (Other)
  Sender: FDA-Public Use
  Company Number: CA-CELGENEUS-028-21880-14075123

PATIENT
  Age: 62 Year
  Sex: Female
  Weight: 60 kg

DRUGS (38)
  1. RITUXIMAB. [Suspect]
     Active Substance: RITUXIMAB
     Dosage: 375 MILLIGRAM/SQ. METER
     Route: 041
  2. POLYETHYLENE GLYCOL [Concomitant]
     Active Substance: POLYETHYLENE GLYCOLS
     Indication: CAPILLARITIS
  3. LORAZEPAM. [Concomitant]
     Active Substance: LORAZEPAM
     Indication: PRODUCT USED FOR UNKNOWN INDICATION
     Route: 065
  4. REVLIMID [Suspect]
     Active Substance: LENALIDOMIDE
     Indication: B-CELL LYMPHOMA
     Dosage: 20 MILLIGRAM
     Route: 048
     Dates: start: 20140628, end: 20140710
  5. METOCLOPRAMIDE. [Concomitant]
     Active Substance: METOCLOPRAMIDE
     Indication: HYPERSENSITIVITY VASCULITIS
  6. VITAMIN C [Concomitant]
     Active Substance: ASCORBIC ACID
     Indication: SUPPLEMENTATION THERAPY
     Dosage: 500 MILLIGRAM
     Route: 065
     Dates: start: 201406
  7. VITAMIN D [Concomitant]
     Active Substance: CHOLECALCIFEROL
     Indication: SUPPLEMENTATION THERAPY
     Dosage: 1000 MILLIGRAM
     Route: 065
     Dates: start: 201406
  8. VITAMIN B [Concomitant]
     Active Substance: VITAMIN B
     Indication: CAPILLARITIS
  9. ATIVAN [Concomitant]
     Active Substance: LORAZEPAM
     Indication: HYPERSENSITIVITY VASCULITIS
  10. OXAZEPAM. [Concomitant]
     Active Substance: OXAZEPAM
     Indication: HYPERSENSITIVITY VASCULITIS
  11. OXAZEPAM. [Concomitant]
     Active Substance: OXAZEPAM
     Indication: CAPILLARITIS
  12. RITUXIMAB. [Suspect]
     Active Substance: RITUXIMAB
     Dosage: 896 MILLIGRAM
     Route: 065
     Dates: start: 20140725
  13. MACROBID [Concomitant]
     Active Substance: NITROFURANTOIN\NITROFURANTOIN MONOHYDRATE
     Indication: HYPERSENSITIVITY VASCULITIS
  14. POLYETHYLENE GLYCOL [Concomitant]
     Active Substance: POLYETHYLENE GLYCOLS
     Indication: CONSTIPATION
     Dosage: 18.5 GRAM
     Route: 065
     Dates: start: 20140713
  15. OXAZEPAM. [Concomitant]
     Active Substance: OXAZEPAM
     Indication: PRODUCT USED FOR UNKNOWN INDICATION
     Route: 065
  16. MELATONIN [Concomitant]
     Active Substance: MELATONIN
     Indication: INSOMNIA
     Dosage: 10 MILLIGRAM
     Route: 065
     Dates: start: 201406
  17. VITAMIN C [Concomitant]
     Active Substance: ASCORBIC ACID
     Indication: CAPILLARITIS
  18. POLYETHYLENE GLYCOL [Concomitant]
     Active Substance: POLYETHYLENE GLYCOLS
     Indication: HYPERSENSITIVITY VASCULITIS
  19. RANITIDINE. [Concomitant]
     Active Substance: RANITIDINE
     Indication: CAPILLARITIS
  20. BENDAMUSTINE [Concomitant]
     Active Substance: BENDAMUSTINE
     Indication: B-CELL LYMPHOMA
     Route: 065
  21. ACETYLSALICYLIC ACID [Concomitant]
     Active Substance: ASPIRIN
     Indication: THROMBOSIS PROPHYLAXIS
     Route: 065
  22. RITUXIMAB. [Suspect]
     Active Substance: RITUXIMAB
     Indication: B-CELL LYMPHOMA
     Dosage: 615 MILLIGRAM
     Route: 041
     Dates: start: 20140627, end: 20140711
  23. ATIVAN [Concomitant]
     Active Substance: LORAZEPAM
     Indication: ANXIETY
     Dosage: .5 MILLIGRAM
     Route: 048
     Dates: start: 20140718
  24. ATIVAN [Concomitant]
     Active Substance: LORAZEPAM
     Indication: CAPILLARITIS
  25. RANITIDINE. [Concomitant]
     Active Substance: RANITIDINE
     Indication: ANXIETY
     Dosage: 30 MILLIGRAM
     Route: 048
     Dates: start: 20140723, end: 20140817
  26. METOCLOPRAMIDE. [Concomitant]
     Active Substance: METOCLOPRAMIDE
     Indication: NAUSEA
     Dosage: 10 MILLIGRAM
     Route: 065
     Dates: start: 201406
  27. METOCLOPRAMIDE. [Concomitant]
     Active Substance: METOCLOPRAMIDE
     Indication: CAPILLARITIS
  28. MELATONIN [Concomitant]
     Active Substance: MELATONIN
     Indication: HYPERSENSITIVITY VASCULITIS
  29. VITAMIN D [Concomitant]
     Active Substance: CHOLECALCIFEROL
     Indication: HYPERSENSITIVITY VASCULITIS
  30. VITAMIN D [Concomitant]
     Active Substance: CHOLECALCIFEROL
     Indication: CAPILLARITIS
  31. VITAMIN B [Concomitant]
     Active Substance: VITAMIN B
     Indication: SUPPLEMENTATION THERAPY
     Dosage: 1 TABLET
     Route: 065
     Dates: start: 201406
  32. VITAMIN B [Concomitant]
     Active Substance: VITAMIN B
     Indication: HYPERSENSITIVITY VASCULITIS
  33. TRAZODONE [Concomitant]
     Active Substance: TRAZODONE HYDROCHLORIDE
     Indication: PRODUCT USED FOR UNKNOWN INDICATION
     Route: 065
  34. MELATONIN [Concomitant]
     Active Substance: MELATONIN
     Indication: CAPILLARITIS
  35. VITAMIN C [Concomitant]
     Active Substance: ASCORBIC ACID
     Indication: HYPERSENSITIVITY VASCULITIS
  36. MACROBID [Concomitant]
     Active Substance: NITROFURANTOIN\NITROFURANTOIN MONOHYDRATE
     Indication: URINARY TRACT INFECTION
     Dosage: 50 MILLIGRAM
     Route: 065
     Dates: start: 20140713, end: 20140714
  37. MACROBID [Concomitant]
     Active Substance: NITROFURANTOIN\NITROFURANTOIN MONOHYDRATE
     Indication: CAPILLARITIS
  38. RANITIDINE. [Concomitant]
     Active Substance: RANITIDINE
     Indication: HYPERSENSITIVITY VASCULITIS

REACTIONS (2)
  - Hypersensitivity vasculitis [Recovered/Resolved]
  - Capillaritis [Recovered/Resolved]

NARRATIVE: CASE EVENT DATE: 20140716
